FAERS Safety Report 16707111 (Version 2)
Quarter: 2019Q3

REPORT INFORMATION
  Report Type: Report from Study
  Country: CN (occurrence: CN)
  Receive Date: 20190815
  Receipt Date: 20190823
  Transmission Date: 20191004
  Serious: Yes (Hospitalization)
  Sender: FDA-Public Use
  Company Number: CN-TAKEDA-2019TUS025221

PATIENT
  Age: 39 Year
  Sex: Male
  Weight: 78 kg

DRUGS (13)
  1. PREDNISONE ACETATE [Concomitant]
     Active Substance: PREDNISONE ACETATE
     Indication: COLITIS ULCERATIVE
     Dosage: 35 MILLIGRAM, QD
     Route: 048
     Dates: start: 20180702, end: 20180718
  2. PREDNISONE ACETATE [Concomitant]
     Active Substance: PREDNISONE ACETATE
     Dosage: 25 MILLIGRAM, QD
     Route: 048
     Dates: start: 20181105, end: 20181111
  3. PREDNISONE ACETATE [Concomitant]
     Active Substance: PREDNISONE ACETATE
     Dosage: 5 MILLIGRAM, QD
     Route: 048
     Dates: start: 20181212, end: 20181218
  4. PREDNISONE ACETATE [Concomitant]
     Active Substance: PREDNISONE ACETATE
     Dosage: 30 MILLIGRAM, QD
     Route: 048
     Dates: start: 20180719
  5. BACILLUS SUBTILIS [Concomitant]
     Active Substance: BACILLUS SUBTILIS
     Indication: DYSBIOSIS
     Dosage: UNK UNK, TID
     Route: 048
     Dates: start: 20180619
  6. PREDNISONE ACETATE [Concomitant]
     Active Substance: PREDNISONE ACETATE
     Dosage: 2.5 MILLIGRAM, QD
     Route: 048
     Dates: start: 20181219, end: 20181225
  7. MESALAZINE [Concomitant]
     Active Substance: MESALAMINE
     Indication: COLITIS ULCERATIVE
     Dosage: 1 GRAM, TID
     Route: 048
     Dates: start: 20180705, end: 20190418
  8. PREDNISONE ACETATE [Concomitant]
     Active Substance: PREDNISONE ACETATE
     Dosage: 15 MILLIGRAM, QD
     Route: 048
     Dates: start: 20181120, end: 20181126
  9. ENTEROCOCCUS FAECIUM [Concomitant]
     Active Substance: ENTEROCOCCUS FAECIUM
     Indication: DYSBIOSIS
     Dosage: UNK UNK, TID
     Route: 048
     Dates: start: 20180619
  10. VEDOLIZUMAB [Suspect]
     Active Substance: VEDOLIZUMAB
     Indication: COLITIS ULCERATIVE
     Dosage: UNK
     Route: 042
     Dates: start: 20180806
  11. PREDNISONE ACETATE [Concomitant]
     Active Substance: PREDNISONE ACETATE
     Dosage: 7.5 MILLIGRAM, QD
     Route: 048
     Dates: start: 20181204, end: 20181211
  12. PREDNISONE ACETATE [Concomitant]
     Active Substance: PREDNISONE ACETATE
     Dosage: 20 MILLIGRAM, QD
     Route: 048
     Dates: start: 20181112, end: 20181119
  13. PREDNISONE ACETATE [Concomitant]
     Active Substance: PREDNISONE ACETATE
     Dosage: 10 MILLIGRAM, QD
     Route: 048
     Dates: start: 20181127, end: 20181203

REACTIONS (1)
  - Colitis ulcerative [Recovered/Resolved]

NARRATIVE: CASE EVENT DATE: 20190419
